FAERS Safety Report 9275848 (Version 1)
Quarter: 2013Q2

REPORT INFORMATION
  Report Type: Report from Study
  Country: US (occurrence: US)
  Receive Date: 20130507
  Receipt Date: 20130507
  Transmission Date: 20140414
  Serious: Yes (Hospitalization, Other)
  Sender: FDA-Public Use
  Company Number: US-PFIZER INC-2013135982

PATIENT
  Age: 60 Year
  Sex: Female
  Weight: 71.66 kg

DRUGS (10)
  1. EFFEXOR [Suspect]
     Dosage: UNK
  2. AMPYRA [Suspect]
     Indication: MULTIPLE SCLEROSIS
     Dosage: 10 MG, 2X/DAY
     Route: 048
  3. MIRAPEX [Suspect]
     Dosage: UNK
  4. QUETIAPINE [Concomitant]
     Dosage: UNK
  5. TOLTERODINE [Concomitant]
     Dosage: UNK
  6. DETROL [Concomitant]
     Dosage: 1 MG, UNK
  7. HYDROCHLOROTHIAZIDE [Concomitant]
     Dosage: 25 MG, UNK
  8. LORAZEPAM [Concomitant]
     Dosage: 1 MG, UNK
  9. BACLOFEN [Concomitant]
     Dosage: 10 MG, UNK
  10. TRICOR [Concomitant]
     Dosage: 145 MG, UNK

REACTIONS (7)
  - Confusional state [Recovered/Resolved]
  - Emotional disorder [Recovered/Resolved]
  - Muscular weakness [Recovered/Resolved]
  - Asthenia [Recovered/Resolved]
  - Fall [Recovered/Resolved]
  - Bronchitis [Recovered/Resolved]
  - Malaise [Recovered/Resolved]
